FAERS Safety Report 19101949 (Version 1)
Quarter: 2021Q2

REPORT INFORMATION
  Report Type: Spontaneous
  Country: US (occurrence: US)
  Receive Date: 20210407
  Receipt Date: 20210407
  Transmission Date: 20210717
  Serious: Yes (Other)
  Sender: FDA-Public Use
  Company Number: None

PATIENT
  Age: 49 Year
  Sex: Female

DRUGS (4)
  1. TRAZODONE [Concomitant]
     Active Substance: TRAZODONE HYDROCHLORIDE
  2. ATORVASTIN [Concomitant]
     Active Substance: ATORVASTATIN
  3. CELEBREX [Concomitant]
     Active Substance: CELECOXIB
  4. TRAZODONE HYDROCHLORIDE 50MG [Suspect]
     Active Substance: TRAZODONE HYDROCHLORIDE
     Indication: INSOMNIA
     Dosage: ?          QUANTITY:90 TABLET(S);?
     Route: 048
     Dates: start: 20170818, end: 20210402

REACTIONS (3)
  - Hangover [None]
  - Nightmare [None]
  - Drug ineffective [None]

NARRATIVE: CASE EVENT DATE: 20210402
